FAERS Safety Report 25182941 (Version 1)
Quarter: 2025Q2

REPORT INFORMATION
  Report Type: Report from Study
  Country: GB (occurrence: GB)
  Receive Date: 20250410
  Receipt Date: 20250410
  Transmission Date: 20250716
  Serious: Yes (Hospitalization)
  Sender: SANDOZ
  Company Number: GB-SANDOZ-SDZ2025GB003217

PATIENT
  Sex: Male

DRUGS (1)
  1. OMNITROPE [Suspect]
     Active Substance: SOMATROPIN
     Indication: Hyperpituitarism
     Dosage: 1.70 MG, QD
     Route: 058
     Dates: start: 20250107

REACTIONS (6)
  - Cardiac disorder [Unknown]
  - Peripheral swelling [Unknown]
  - Oedema [Unknown]
  - Injection site pain [Unknown]
  - Injection site swelling [Unknown]
  - Product use in unapproved indication [Unknown]
